FAERS Safety Report 16532942 (Version 1)
Quarter: 2019Q3

REPORT INFORMATION
  Report Type: Spontaneous
  Country: US (occurrence: US)
  Receive Date: 20190705
  Receipt Date: 20190705
  Transmission Date: 20191004
  Serious: Yes (Other)
  Sender: FDA-Public Use
  Company Number: PHHY2019US155500

PATIENT

DRUGS (6)
  1. OXALIPLATIN. [Suspect]
     Active Substance: OXALIPLATIN
     Indication: DIFFUSE LARGE B-CELL LYMPHOMA
     Dosage: UNK UNK, CYCLIC (2 CYCLES)
     Route: 065
     Dates: start: 20190503
  2. RITUXIMAB. [Suspect]
     Active Substance: RITUXIMAB
     Dosage: UNK,CYCLIC (1 CYCLE)
     Route: 065
     Dates: start: 20190614
  3. OXALIPLATIN. [Suspect]
     Active Substance: OXALIPLATIN
     Dosage: UNK UNK, CYCLIC (1 CYCLE)
     Route: 065
     Dates: start: 20190614
  4. RITUXIMAB. [Suspect]
     Active Substance: RITUXIMAB
     Indication: DIFFUSE LARGE B-CELL LYMPHOMA
     Dosage: UNK, CYCLIC (2 CYCLES)
     Route: 065
     Dates: start: 20190503
  5. GEMCITABINE. [Suspect]
     Active Substance: GEMCITABINE
     Indication: DIFFUSE LARGE B-CELL LYMPHOMA
     Dosage: UNK UNK, CYCLIC (2 CYCLES)
     Route: 065
     Dates: start: 20190503
  6. GEMCITABINE. [Suspect]
     Active Substance: GEMCITABINE
     Dosage: UNK, CYCLIC (1 CYCLE)
     Route: 065
     Dates: start: 20190614

REACTIONS (1)
  - Thrombocytopenia [Unknown]
